FAERS Safety Report 8346289-8 (Version None)
Quarter: 2012Q2

REPORT INFORMATION
  Report Type: 
  Country: None (occurrence: None)
  Receive Date: 20120507
  Receipt Date: 20120427
  Transmission Date: 20120825
  Serious: No
  Sender: FDA-Public Use
  Company Number: 120179

PATIENT
  Age: 60 Year
  Sex: Male

DRUGS (1)
  1. SUPREP BOWEL PREP KIT [Suspect]
     Indication: COLONOSCOPY
     Dosage: 2 X 6OZ BOTTLE/1X/PO
     Route: 048
     Dates: start: 20120321, end: 20120322

REACTIONS (1)
  - LARGE INTESTINE PERFORATION [None]
